FAERS Safety Report 23740645 (Version 2)
Quarter: 2024Q2

REPORT INFORMATION
  Report Type: Spontaneous
  Country: US (occurrence: None)
  Receive Date: 20240415
  Receipt Date: 20240513
  Transmission Date: 20240715
  Serious: No
  Sender: FDA-Public Use
  Company Number: 2024A068663

PATIENT
  Sex: Male

DRUGS (4)
  1. BREZTRI [Suspect]
     Active Substance: BUDESONIDE\FORMOTEROL\GLYCOPYRROLATE
     Route: 055
  2. SYMBICORT [Suspect]
     Active Substance: BUDESONIDE\FORMOTEROL FUMARATE DIHYDRATE
     Dosage: UNKNOWN UNKNOWN
     Route: 055
  3. NYSTATIN [Concomitant]
     Active Substance: NYSTATIN
  4. AMOXICILLIN [Concomitant]
     Active Substance: AMOXICILLIN

REACTIONS (11)
  - Oropharyngeal discomfort [Unknown]
  - Candida infection [Unknown]
  - Choking sensation [Unknown]
  - Feeding disorder [Unknown]
  - Fluid intake reduced [Unknown]
  - Dysphagia [Unknown]
  - Speech disorder [Unknown]
  - Memory impairment [Unknown]
  - Oral candidiasis [Unknown]
  - Wrong technique in device usage process [Unknown]
  - Intentional dose omission [Unknown]
